FAERS Safety Report 5360562-7 (Version None)
Quarter: 2007Q2

REPORT INFORMATION
  Report Type: 
  Country: None (occurrence: None)
  Receive Date: 20070530
  Receipt Date: 20070208
  Transmission Date: 20071010
  Serious: No
  Sender: FDA-Public Use
  Company Number: 2007PV029815

PATIENT
  Age: 60 Year
  Sex: Female

DRUGS (5)
  1. BYETTA [Suspect]
     Indication: DIABETES MELLITUS NON-INSULIN-DEPENDENT
     Dosage: 5 MCG; BID; SC; 10 MCG; BID; SC, 5 MCG; BID; SC
     Route: 058
     Dates: start: 20061001, end: 20061201
  2. BYETTA [Suspect]
     Indication: DIABETES MELLITUS NON-INSULIN-DEPENDENT
     Dosage: 5 MCG; BID; SC; 10 MCG; BID; SC, 5 MCG; BID; SC
     Route: 058
     Dates: start: 20061201, end: 20061201
  3. BYETTA [Suspect]
     Indication: DIABETES MELLITUS NON-INSULIN-DEPENDENT
     Dosage: 5 MCG; BID; SC; 10 MCG; BID; SC, 5 MCG; BID; SC
     Route: 058
     Dates: start: 20061201, end: 20061201
  4. HUMALOG [Concomitant]
  5. HUMULIN R [Concomitant]

REACTIONS (3)
  - DIARRHOEA [None]
  - MUSCLE SPASMS [None]
  - NAUSEA [None]
